FAERS Safety Report 9351177 (Version 1)
Quarter: 2013Q2

REPORT INFORMATION
  Report Type: Spontaneous
  Country: US (occurrence: US)
  Receive Date: 20130617
  Receipt Date: 20130617
  Transmission Date: 20140414
  Serious: Yes (Hospitalization)
  Sender: FDA-Public Use
  Company Number: US-BAYER-2013-071635

PATIENT
  Age: 35 Year
  Sex: Female

DRUGS (7)
  1. YAZ [Suspect]
  2. YASMIN [Suspect]
  3. LIPITOR [Concomitant]
  4. IMDUR [Concomitant]
  5. LIOTHYRONIN [Concomitant]
  6. OMEGA 3 [Concomitant]
  7. LEVOXYL [Concomitant]

REACTIONS (2)
  - Acute myocardial infarction [None]
  - Coronary artery thrombosis [None]
